FAERS Safety Report 7151770-3 (Version None)
Quarter: 2010Q4

REPORT INFORMATION
  Report Type: 
  Country: None (occurrence: None)
  Receive Date: 20101210
  Receipt Date: 20101130
  Transmission Date: 20110411
  Serious: Yes (Hospitalization)
  Sender: FDA-Public Use
  Company Number: FR-SANOFI-AVENTIS-2010SA072530

PATIENT
  Age: 59 Year
  Sex: Female

DRUGS (2)
  1. FLUDEX [Suspect]
     Indication: HYPERTENSION
     Route: 048
     Dates: end: 20100826
  2. ALDACTONE [Suspect]
     Route: 048
     Dates: end: 20100826

REACTIONS (5)
  - DIARRHOEA [None]
  - HYPOAESTHESIA [None]
  - HYPOKALAEMIA [None]
  - HYPONATRAEMIA [None]
  - PARAESTHESIA [None]
